FAERS Safety Report 8809727 (Version 1)
Quarter: 2012Q4

REPORT INFORMATION
  Report Type: 
  Country: US (occurrence: US)
  Receive Date: 20120926
  Receipt Date: 20120926
  Transmission Date: 20130627
  Serious: Yes (Death, Life-Threatening, Other)
  Sender: FDA-Public Use
  Company Number: US-ROCHE-1126883

PATIENT
  Sex: Male

DRUGS (3)
  1. AVASTIN [Suspect]
     Indication: COLON CANCER
     Route: 065
     Dates: start: 200407
  2. AVASTIN [Suspect]
     Route: 065
     Dates: start: 20050317
  3. ERBITUX [Concomitant]

REACTIONS (5)
  - Death [Fatal]
  - Metastatic neoplasm [Unknown]
  - Lymphatic obstruction [Unknown]
  - Oedema peripheral [Unknown]
  - Disease progression [Unknown]
